FAERS Safety Report 18861070 (Version 11)
Quarter: 2021Q4

REPORT INFORMATION
  Report Type: Report from Study
  Country: PA (occurrence: PA)
  Receive Date: 20210208
  Receipt Date: 20211008
  Transmission Date: 20220303
  Serious: Yes (Hospitalization, Other)
  Sender: FDA-Public Use
  Company Number: NVSC2021PA026749

PATIENT
  Age: 43 Year
  Sex: Male

DRUGS (6)
  1. SECUKINUMAB [Suspect]
     Active Substance: SECUKINUMAB
     Indication: Psoriasis
     Dosage: 300 MG, QMO
     Route: 058
     Dates: start: 20191015
  2. SECUKINUMAB [Suspect]
     Active Substance: SECUKINUMAB
     Dosage: UNK
     Route: 065
  3. SECUKINUMAB [Suspect]
     Active Substance: SECUKINUMAB
     Dosage: 300 MG, QMO
     Route: 058
  4. SECUKINUMAB [Suspect]
     Active Substance: SECUKINUMAB
     Dosage: 300 MG, QMO, BENEATH THE SKIN, USUALLY VIA INJECTION
     Route: 058
     Dates: start: 20191022
  5. SECUKINUMAB [Suspect]
     Active Substance: SECUKINUMAB
     Dosage: 300 MG, QMO
     Route: 058
  6. SECUKINUMAB [Suspect]
     Active Substance: SECUKINUMAB
     Dosage: 300 MG, QMO
     Route: 058

REACTIONS (26)
  - COVID-19 pneumonia [Unknown]
  - Oxygen saturation decreased [Recovering/Resolving]
  - Groin abscess [Unknown]
  - Stress [Not Recovered/Not Resolved]
  - Malaise [Unknown]
  - Myalgia [Recovering/Resolving]
  - Fatigue [Recovering/Resolving]
  - Hypersensitivity [Not Recovered/Not Resolved]
  - Pain [Recovering/Resolving]
  - Influenza [Recovering/Resolving]
  - Feeling abnormal [Unknown]
  - Tremor [Unknown]
  - Bone pain [Unknown]
  - Muscle injury [Recovering/Resolving]
  - Tendonitis [Unknown]
  - Pain in extremity [Recovering/Resolving]
  - Sciatica [Recovering/Resolving]
  - Psoriasis [Not Recovered/Not Resolved]
  - Skin plaque [Not Recovered/Not Resolved]
  - Skin haemorrhage [Unknown]
  - Sensitive skin [Not Recovered/Not Resolved]
  - Oedema peripheral [Not Recovered/Not Resolved]
  - Erythema [Unknown]
  - Burning sensation [Unknown]
  - Nasopharyngitis [Recovering/Resolving]
  - Inappropriate schedule of product administration [Unknown]

NARRATIVE: CASE EVENT DATE: 20210116
